FAERS Safety Report 26159011 (Version 1)
Quarter: 2025Q4

REPORT INFORMATION
  Report Type: Spontaneous
  Country: AU (occurrence: AU)
  Receive Date: 20251215
  Receipt Date: 20251215
  Transmission Date: 20260117
  Serious: Yes (Other)
  Sender: ACCORD
  Company Number: None

PATIENT
  Age: 49 Year
  Sex: Male

DRUGS (10)
  1. CARBOPLATIN [Suspect]
     Active Substance: CARBOPLATIN
     Indication: Product used for unknown indication
  2. CAPECITABINE [Concomitant]
     Active Substance: CAPECITABINE
  3. CEFEPIME HYDROCHLORIDE [Concomitant]
     Active Substance: CEFEPIME HYDROCHLORIDE
  4. CIPROFLOXACIN HYDROCHLORIDE [Concomitant]
     Active Substance: CIPROFLOXACIN HYDROCHLORIDE
  5. ENOXAPARIN SODIUM [Concomitant]
     Active Substance: ENOXAPARIN SODIUM
  6. HYDROMORPHONE HYDROCHLORIDE [Concomitant]
     Active Substance: HYDROMORPHONE HYDROCHLORIDE
  7. METOCLOPRAMIDE [Concomitant]
     Active Substance: METOCLOPRAMIDE
  8. NETUPITANT\PALONOSETRON HYDROCHLORIDE [Concomitant]
     Active Substance: NETUPITANT\PALONOSETRON HYDROCHLORIDE
  9. PARECOXIB SODIUM [Concomitant]
     Active Substance: PARECOXIB SODIUM
  10. PREGABALIN [Concomitant]
     Active Substance: PREGABALIN

REACTIONS (9)
  - Chest discomfort [Unknown]
  - Dystonia [Unknown]
  - Dyspnoea [Unknown]
  - Erythema [Unknown]
  - Flushing [Unknown]
  - Oxygen saturation decreased [Unknown]
  - Pruritus [Unknown]
  - Rash [Unknown]
  - Tachycardia [Unknown]
